FAERS Safety Report 9940817 (Version 2)
Quarter: 2014Q1

REPORT INFORMATION
  Report Type: Spontaneous
  Country: US (occurrence: US)
  Receive Date: 20140303
  Receipt Date: 20140303
  Transmission Date: 20141002
  Serious: No
  Sender: FDA-Public Use
  Company Number: US-MYLANLABS-2013S1028240

PATIENT
  Age: 76 Year
  Sex: Female
  Weight: 49.9 kg

DRUGS (8)
  1. MONTELUKAST SODIUM TABLETS [Suspect]
     Indication: ASTHMA
     Route: 048
     Dates: start: 201311, end: 20131214
  2. MONTELUKAST SODIUM TABLETS [Suspect]
     Indication: ASTHMA
     Route: 048
     Dates: start: 20131216
  3. ALLEGRA [Concomitant]
     Indication: MULTIPLE ALLERGIES
  4. PRAVASTATIN [Concomitant]
     Indication: BLOOD CHOLESTEROL INCREASED
  5. IBUPROFEN [Concomitant]
     Indication: PAIN
  6. DILTIAZEM [Concomitant]
     Indication: HEART RATE INCREASED
  7. PULMICORT [Concomitant]
     Indication: ASTHMA
  8. BROVANA [Concomitant]
     Indication: ASTHMA

REACTIONS (2)
  - Rash generalised [Not Recovered/Not Resolved]
  - Pruritus generalised [Not Recovered/Not Resolved]
